FAERS Safety Report 7322952-2 (Version None)
Quarter: 2011Q1

REPORT INFORMATION
  Report Type: 
  Country: None (occurrence: None)
  Receive Date: 20110301
  Receipt Date: 20110223
  Transmission Date: 20110831
  Serious: Yes (Hospitalization)
  Sender: FDA-Public Use
  Company Number: PL-BRISTOL-MYERS SQUIBB COMPANY-15566177

PATIENT
  Age: 65 Year
  Weight: 40 kg

DRUGS (10)
  1. KETONAL [Concomitant]
     Dates: start: 20110129, end: 20110201
  2. CISPLATIN [Suspect]
     Indication: NON-SMALL CELL LUNG CANCER
     Dosage: LAST INF:21DEC10.
     Route: 065
     Dates: start: 20100907
  3. NECITUMUMAB [Suspect]
     Indication: NON-SMALL CELL LUNG CANCER
     Route: 065
     Dates: start: 20100907
  4. GEMCITABINE HCL [Suspect]
     Indication: NON-SMALL CELL LUNG CANCER
     Dosage: LAST INF:18JAN2011.
     Route: 065
     Dates: start: 20100907
  5. THEOVENT [Concomitant]
  6. ATROVENT [Concomitant]
  7. MORPHINE HCL ELIXIR [Concomitant]
  8. MORPHINE SULFATE [Concomitant]
  9. MIFLONIDE [Concomitant]
  10. POLPRAZOL [Concomitant]

REACTIONS (1)
  - ABDOMINAL PAIN [None]
